FAERS Safety Report 9450015 (Version 1)
Quarter: 2013Q3

REPORT INFORMATION
  Report Type: Spontaneous
  Country: AU (occurrence: AU)
  Receive Date: 20130809
  Receipt Date: 20130809
  Transmission Date: 20140515
  Serious: Yes (Other)
  Sender: FDA-Public Use
  Company Number: AU-PFIZER INC-2013229403

PATIENT
  Sex: Female

DRUGS (1)
  1. DILANTIN [Suspect]
     Indication: ANEURYSM
     Dosage: 300 MG, 3X/DAY
     Dates: start: 1993

REACTIONS (2)
  - Off label use [Unknown]
  - Convulsion [Unknown]
